FAERS Safety Report 24263657 (Version 1)
Quarter: 2024Q3

REPORT INFORMATION
  Report Type: Spontaneous
  Country: CN (occurrence: CN)
  Receive Date: 20240829
  Receipt Date: 20240829
  Transmission Date: 20241017
  Serious: Yes (Hospitalization)
  Sender: PAREXEL
  Company Number: CN-SHANGHAI JUNSHI BIOSCIENCES CO., LTD.-CN2024011106

PATIENT

DRUGS (2)
  1. TORIPALIMAB [Suspect]
     Active Substance: TORIPALIMAB
     Indication: Nasopharyngeal cancer
     Dosage: 240 MG (D1)
     Route: 041
     Dates: start: 20240220, end: 20240220
  2. ENDOSTATIN [Suspect]
     Active Substance: ENDOSTATIN
     Indication: Nasopharyngeal cancer
     Dosage: 30 MG, QD
     Route: 041
     Dates: start: 20240220, end: 20240226

REACTIONS (1)
  - White blood cell count decreased [Recovering/Resolving]

NARRATIVE: CASE EVENT DATE: 20240311
